FAERS Safety Report 8914602 (Version 1)
Quarter: 2012Q4

REPORT INFORMATION
  Report Type: 
  Country: US (occurrence: US)
  Receive Date: 20121119
  Receipt Date: 20121119
  Transmission Date: 20130627
  Serious: Yes (Hospitalization)
  Sender: FDA-Public Use
  Company Number: US-ROCHE-1154551

PATIENT
  Sex: Male

DRUGS (1)
  1. DIAZEPAM [Suspect]
     Indication: ALCOHOL WITHDRAWAL SYNDROME
     Route: 065

REACTIONS (2)
  - Drug ineffective [Unknown]
  - Delirium tremens [Unknown]
